FAERS Safety Report 18374811 (Version 1)
Quarter: 2020Q4

REPORT INFORMATION
  Report Type: Spontaneous
  Country: US (occurrence: US)
  Receive Date: 20201012
  Receipt Date: 20201012
  Transmission Date: 20210114
  Serious: Yes (Hospitalization, Disabling, Other)
  Sender: FDA-Public Use
  Company Number: US-PURDUE-USA-2020-0169600

PATIENT
  Sex: Male

DRUGS (3)
  1. DILAUDID [Suspect]
     Active Substance: HYDROMORPHONE HYDROCHLORIDE
     Indication: PRODUCT USED FOR UNKNOWN INDICATION
     Dosage: UNK
     Route: 064
  2. HYDROCODONE BITARTRATE. [Suspect]
     Active Substance: HYDROCODONE BITARTRATE
     Indication: PRODUCT USED FOR UNKNOWN INDICATION
     Route: 064
  3. OXYCODONE/ ACETAMINOPHEN TABLETS [Suspect]
     Active Substance: ACETAMINOPHEN\OXYCODONE HYDROCHLORIDE
     Indication: PRODUCT USED FOR UNKNOWN INDICATION
     Route: 064

REACTIONS (19)
  - Developmental delay [Unknown]
  - Hospitalisation [Unknown]
  - Poor sucking reflex [Unknown]
  - Foetal exposure timing unspecified [Unknown]
  - Incubator therapy [Unknown]
  - Anxiety [Unknown]
  - Learning disability [Unknown]
  - Visual impairment [Unknown]
  - Blindness unilateral [Unknown]
  - Drug withdrawal syndrome neonatal [Unknown]
  - Low birth weight baby [Unknown]
  - Ear infection [Unknown]
  - Jaundice neonatal [Unknown]
  - Attention deficit hyperactivity disorder [Unknown]
  - Depression [Unknown]
  - Speech disorder [Unknown]
  - Language disorder [Unknown]
  - Sleep disorder [Unknown]
  - Hyporeflexia [Unknown]

NARRATIVE: CASE EVENT DATE: 2005
